FAERS Safety Report 25557364 (Version 1)
Quarter: 2025Q3

REPORT INFORMATION
  Report Type: Spontaneous
  Country: VN (occurrence: VN)
  Receive Date: 20250715
  Receipt Date: 20250715
  Transmission Date: 20251021
  Serious: Yes (Other)
  Sender: NOVARTIS
  Company Number: VN-002147023-NVSC2024VN078513

PATIENT
  Age: 76 Year
  Sex: Female

DRUGS (3)
  1. RIBOCICLIB [Suspect]
     Active Substance: RIBOCICLIB
     Indication: Breast cancer
     Dosage: 2 DOSAGE FORM, (TABLETS) QD (TOTAL DOSE 400MG)
     Route: 048
     Dates: start: 202111
  2. RIBOCICLIB [Suspect]
     Active Substance: RIBOCICLIB
     Dosage: 2 DOSAGE FORM, (TABLETS) QD (TOTAL DOSE 400MG)
     Route: 048
     Dates: end: 202501
  3. ANASTROZOLE [Suspect]
     Active Substance: ANASTROZOLE
     Indication: Breast cancer
     Dosage: 1 MG, QD
     Route: 048
     Dates: start: 202111, end: 202501

REACTIONS (4)
  - Neutropenia [Recovered/Resolved]
  - Metastases to bone [Unknown]
  - Fatigue [Recovered/Resolved]
  - Spinal pain [Not Recovered/Not Resolved]
